FAERS Safety Report 7936382-3 (Version None)
Quarter: 2011Q4

REPORT INFORMATION
  Report Type: 
  Country: None (occurrence: None)
  Receive Date: 20111121
  Receipt Date: 20111104
  Transmission Date: 20120403
  Serious: Yes (Other)
  Sender: FDA-Public Use
  Company Number: 2011-485

PATIENT
  Age: 9 Month
  Sex: Female

DRUGS (1)
  1. ELESTRIN [Suspect]
     Dosage: TOPICAL
     Route: 061

REACTIONS (3)
  - ACCIDENTAL EXPOSURE [None]
  - FAT TISSUE INCREASED [None]
  - PRECOCIOUS PUBERTY [None]
